FAERS Safety Report 19848839 (Version 1)
Quarter: 2021Q3

REPORT INFORMATION
  Report Type: Spontaneous
  Country: DE (occurrence: DE)
  Receive Date: 20210918
  Receipt Date: 20210918
  Transmission Date: 20211014
  Serious: Yes (Hospitalization)
  Sender: FDA-Public Use
  Company Number: DE-ACCORD-238937

PATIENT
  Age: 63 Year
  Sex: Female

DRUGS (9)
  1. POTASSIUM IODIDE / LEVOTHYROXINE SODIUM [Concomitant]
     Dosage: 50 UG, 1?0?0?0
  2. PACLITAXEL. [Suspect]
     Active Substance: PACLITAXEL
     Indication: PRODUCT USED FOR UNKNOWN INDICATION
     Dosage: SCHEME
  3. SERTRALINE [Concomitant]
     Active Substance: SERTRALINE HYDROCHLORIDE
     Dosage: 50 MG, 1?0?0?0
  4. ESOMEPRAZOLE. [Concomitant]
     Active Substance: ESOMEPRAZOLE MAGNESIUM
     Dosage: 20 MG, 0?1?0?0
  5. MAPROTILINE [Concomitant]
     Active Substance: MAPROTILINE
     Dosage: 75 MG, 0?0?1?0
  6. BISOPROLOL [Concomitant]
     Active Substance: BISOPROLOL
     Dosage: 2.5 MG, 1?0?0?0
  7. CARBOPLATIN. [Suspect]
     Active Substance: CARBOPLATIN
     Indication: PRODUCT USED FOR UNKNOWN INDICATION
     Dosage: SCHEME
  8. CANDESARTAN CILEXETIL AND HYDROCHLOROTHIAZIDE [Concomitant]
     Active Substance: CANDESARTAN CILEXETIL\HYDROCHLOROTHIAZIDE
     Dosage: 16/12.5 MG, 1?0?0?0
  9. BUDESONIDE. [Concomitant]
     Active Substance: BUDESONIDE
     Dosage: 200 UG, 1?0?0?0

REACTIONS (9)
  - Hemiparesis [Unknown]
  - Aphasia [Unknown]
  - General physical health deterioration [Unknown]
  - Disorientation [Unknown]
  - Cerebral infarction [Unknown]
  - Restlessness [Unknown]
  - Anaemia [Unknown]
  - Language disorder [Unknown]
  - Weight increased [Unknown]
